FAERS Safety Report 24223385 (Version 1)
Quarter: 2024Q3

REPORT INFORMATION
  Report Type: Spontaneous
  Country: US (occurrence: US)
  Receive Date: 20240819
  Receipt Date: 20240819
  Transmission Date: 20241017
  Serious: No
  Sender: NOVARTIS
  Company Number: US-002147023-NVSC2024US167398

PATIENT

DRUGS (2)
  1. LEQVIO [Suspect]
     Active Substance: INCLISIRAN SODIUM
     Indication: Hyperlipidaemia
     Dosage: 284 MG (DAY 0, MONTH 3, AND EVERY 6 MONTHS AFTER)
     Route: 058
  2. LEQVIO [Suspect]
     Active Substance: INCLISIRAN SODIUM
     Indication: Type IIa hyperlipidaemia

REACTIONS (1)
  - Muscular weakness [Unknown]

NARRATIVE: CASE EVENT DATE: 20240816
